FAERS Safety Report 12252022 (Version 1)
Quarter: 2016Q2

REPORT INFORMATION
  Report Type: Spontaneous
  Country: US (occurrence: US)
  Receive Date: 20160411
  Receipt Date: 20160411
  Transmission Date: 20160815
  Serious: Yes (Other)
  Sender: FDA-Public Use
  Company Number: US-CIPLA LTD.-2016US03511

PATIENT

DRUGS (4)
  1. FLUOROURACIL. [Suspect]
     Active Substance: FLUOROURACIL
     Indication: GASTROOESOPHAGEAL CANCER
     Dosage: 225 MG/M2, QD 96-HOURS CONTINUOUSLY FROM MONDAY TO FRIDAY THROUGH THE DURATION OF RADIOTHERAPY
  2. PACLITAXEL. [Suspect]
     Active Substance: PACLITAXEL
     Indication: GASTROOESOPHAGEAL CANCER
     Dosage: 50 MG/M2, QD, ON DAYS 1, 8, 15, 22 AND 29
  3. VANDETANIB. [Suspect]
     Active Substance: VANDETANIB
     Indication: GASTROOESOPHAGEAL CANCER
     Dosage: 100 MG, QD, FROM DAY 1 THROUGH THE COMPLETION OF RADIATION THERAPY
     Route: 048
  4. CARBOPLATIN. [Suspect]
     Active Substance: CARBOPLATIN
     Indication: GASTROOESOPHAGEAL CANCER
     Dosage: AUC 5, Q4WK ON DAYS 1 AND 29
     Route: 042

REACTIONS (1)
  - Disease recurrence [Unknown]
